FAERS Safety Report 6544747-X (Version None)
Quarter: 2010Q1

REPORT INFORMATION
  Report Type: 
  Country: None (occurrence: None)
  Receive Date: 20100121
  Receipt Date: 20100111
  Transmission Date: 20100710
  Serious: Yes (Death, Hospitalization)
  Sender: FDA-Public Use
  Company Number: FR-BRISTOL-MYERS SQUIBB COMPANY-14760201

PATIENT
  Age: 66 Year
  Sex: Female

DRUGS (2)
  1. ERBITUX [Suspect]
     Indication: OROPHARYNGEAL CANCER STAGE UNSPECIFIED
     Dosage: LAST DOSE 370MG
     Route: 042
     Dates: start: 20090326, end: 20090525
  2. RADIOTHERAPY [Suspect]
     Indication: OROPHARYNGEAL CANCER STAGE UNSPECIFIED
     Dosage: 1 DF- 1.8GY/FRACTION 26MAR-25MAY09 (59DAYS) 17JUN-03JUL09 (16DAYS)
     Dates: start: 20090326, end: 20090525

REACTIONS (3)
  - ENDOCARDITIS STAPHYLOCOCCAL [None]
  - RADIATION SKIN INJURY [None]
  - STAPHYLOCOCCAL SEPSIS [None]
